FAERS Safety Report 17562508 (Version 1)
Quarter: 2020Q1

REPORT INFORMATION
  Report Type: Report from Study
  Country: US (occurrence: US)
  Receive Date: 20200319
  Receipt Date: 20200319
  Transmission Date: 20200409
  Serious: Yes (Hospitalization)
  Sender: FDA-Public Use
  Company Number: US-ALNYLAM PHARMACEUTICALS, INC.-ALN-2020-000159

PATIENT
  Age: 70 Year
  Sex: Female

DRUGS (5)
  1. ONPATTRO [Suspect]
     Active Substance: PATISIRAN SODIUM
     Indication: HEREDITARY NEUROPATHIC AMYLOIDOSIS
     Dosage: UNK UNK, Q3W
     Route: 042
     Dates: start: 201911
  2. DEXAMETHASONE. [Concomitant]
     Active Substance: DEXAMETHASONE
     Indication: PROPHYLAXIS
     Dosage: UNK, Q3W
     Route: 042
  3. DIPHENHYDRAMINE. [Concomitant]
     Active Substance: DIPHENHYDRAMINE
     Indication: PROPHYLAXIS
     Dosage: UNK, Q3W
     Route: 042
  4. PARACETAMOL [Concomitant]
     Active Substance: ACETAMINOPHEN
     Indication: PROPHYLAXIS
     Dosage: 2 DOSES, Q3W
     Route: 048
  5. FAMOTIDINE. [Concomitant]
     Active Substance: FAMOTIDINE
     Indication: PROPHYLAXIS
     Dosage: UNK, Q3W
     Route: 042

REACTIONS (14)
  - Infusion site pain [Unknown]
  - Infusion site extravasation [Unknown]
  - Cataract operation [Unknown]
  - Muscular weakness [Unknown]
  - Infusion site bruising [Unknown]
  - Infusion site swelling [Recovering/Resolving]
  - Somnolence [Unknown]
  - Infusion site warmth [Unknown]
  - Weight decreased [Unknown]
  - Diarrhoea [Unknown]
  - Constipation [Unknown]
  - Infusion site inflammation [Unknown]
  - Ichthyosis acquired [Unknown]
  - Eczema [Unknown]

NARRATIVE: CASE EVENT DATE: 202001
